FAERS Safety Report 12634568 (Version 1)
Quarter: 2016Q3

REPORT INFORMATION
  Report Type: Report from Study
  Country: US (occurrence: US)
  Receive Date: 20160809
  Receipt Date: 20160809
  Transmission Date: 20161109
  Serious: Yes (Death, Hospitalization)
  Sender: FDA-Public Use
  Company Number: US-TAIHO ONCOLOGY INC-EU-2016-01676

PATIENT
  Age: 71 Year
  Sex: Female

DRUGS (1)
  1. LONSURF [Suspect]
     Active Substance: TIPIRACIL HYDROCHLORIDE\TRIFLURIDINE
     Dosage: DOSAGE REGIMEN UNKNOWN
     Route: 048

REACTIONS (12)
  - Death [Fatal]
  - Asthenia [Unknown]
  - Thrombocytopenia [Unknown]
  - Oedema peripheral [Unknown]
  - Aortic thrombosis [Unknown]
  - Vena cava thrombosis [Unknown]
  - Hypertension [Unknown]
  - Performance status decreased [Unknown]
  - Leukocytosis [Unknown]
  - Pulmonary embolism [Unknown]
  - Bile duct obstruction [Unknown]
  - Acute kidney injury [Unknown]

NARRATIVE: CASE EVENT DATE: 201607
